FAERS Safety Report 19741864 (Version 2)
Quarter: 2023Q2

REPORT INFORMATION
  Report Type: Spontaneous
  Country: JP (occurrence: JP)
  Receive Date: 20210824
  Receipt Date: 20230412
  Transmission Date: 20230721
  Serious: Yes (Hospitalization)
  Sender: FDA-Public Use
  Company Number: JP-DSJP-DSJ-2021-125992AA

PATIENT
  Age: 8 Decade
  Sex: Female

DRUGS (1)
  1. EDOXABAN TOSYLATE [Suspect]
     Active Substance: EDOXABAN TOSYLATE
     Indication: Atrial fibrillation
     Dosage: UNK
     Route: 048

REACTIONS (4)
  - Intra-abdominal haemorrhage [Unknown]
  - Shock haemorrhagic [Recovering/Resolving]
  - Tumour rupture [Unknown]
  - Hypercoagulation [Unknown]
